FAERS Safety Report 6250115-0 (Version None)
Quarter: 2009Q2

REPORT INFORMATION
  Report Type: 
  Country: None (occurrence: None)
  Receive Date: 20090626
  Receipt Date: 20090622
  Transmission Date: 20091009
  Serious: Yes (Death)
  Sender: FDA-Public Use
  Company Number: 2009US002300

PATIENT
  Age: 51 Year
  Sex: Female

DRUGS (10)
  1. PROGRAF [Suspect]
     Indication: RENAL TRANSPLANT
     Dosage: 3 MG, BID
  2. PREDNISONE TAB [Concomitant]
  3. MYFORTIC [Concomitant]
  4. PEPCID [Concomitant]
  5. BACTRIM [Concomitant]
  6. LOPRESSOR [Concomitant]
  7. LANTUS [Concomitant]
  8. LISINOPRIL [Concomitant]
  9. LIPITOR [Concomitant]
  10. CLONIDINE HCL (CLONIDINE HYDROCHLORIDE) [Concomitant]

REACTIONS (1)
  - DEATH [None]
